FAERS Safety Report 24416254 (Version 1)
Quarter: 2024Q4

REPORT INFORMATION
  Report Type: Spontaneous
  Country: US (occurrence: None)
  Receive Date: 20241008
  Receipt Date: 20241008
  Transmission Date: 20250115
  Serious: Yes (Hospitalization)
  Sender: Public
  Company Number: None

PATIENT
  Age: 66 Year
  Sex: Male

DRUGS (1)
  1. OLANZAPINE [Suspect]
     Active Substance: OLANZAPINE
     Indication: Agitation
     Dosage: FREQUENCY : 3 TIMES A DAY;?
     Route: 048

REACTIONS (8)
  - Hyperammonaemia [None]
  - Mental status changes [None]
  - Unresponsive to stimuli [None]
  - Haematemesis [None]
  - Hepatomegaly [None]
  - Hepatic steatosis [None]
  - Constipation [None]
  - Mallory-Weiss syndrome [None]

NARRATIVE: CASE EVENT DATE: 20240506
